FAERS Safety Report 10508699 (Version 2)
Quarter: 2014Q4

REPORT INFORMATION
  Report Type: Spontaneous
  Country: DE (occurrence: DE)
  Receive Date: 20141009
  Receipt Date: 20141009
  Transmission Date: 20150528
  Serious: Yes (Hospitalization, Other)
  Sender: FDA-Public Use
  Company Number: DE-BRISTOL-MYERS SQUIBB COMPANY-21234844

PATIENT
  Age: 64 Year
  Sex: Male
  Weight: 95 kg

DRUGS (5)
  1. RANITINE [Concomitant]
  2. ELIQUIS [Suspect]
     Active Substance: APIXABAN
     Route: 048
     Dates: start: 201403, end: 2014
  3. BISOPROLOL [Concomitant]
     Active Substance: BISOPROLOL
  4. CANDESARTAN [Concomitant]
     Active Substance: CANDESARTAN
  5. TAMBOCOR [Concomitant]
     Active Substance: FLECAINIDE ACETATE

REACTIONS (2)
  - Intracardiac thrombus [Recovered/Resolved]
  - Tachyarrhythmia [Unknown]

NARRATIVE: CASE EVENT DATE: 2014
